FAERS Safety Report 21351320 (Version 1)
Quarter: 2022Q3

REPORT INFORMATION
  Report Type: Report from Study
  Country: BR (occurrence: BR)
  Receive Date: 20220919
  Receipt Date: 20220919
  Transmission Date: 20221027
  Serious: Yes (Other)
  Sender: FDA-Public Use
  Company Number: BR-MYLANLABS-2022M1093912

PATIENT
  Age: 36 Year
  Sex: Male
  Weight: 80 kg

DRUGS (1)
  1. CLOZAPINE [Suspect]
     Active Substance: CLOZAPINE
     Indication: Schizophrenia
     Dosage: 900 MILLIGRAM, QD
     Route: 048
     Dates: start: 2009

REACTIONS (6)
  - Suicidal ideation [Recovering/Resolving]
  - Persecutory delusion [Recovering/Resolving]
  - Schizophrenia [Recovered/Resolved]
  - Seizure [Unknown]
  - Physical disability [Unknown]
  - Anxiety [Unknown]

NARRATIVE: CASE EVENT DATE: 20220601
